FAERS Safety Report 25472217 (Version 1)
Quarter: 2025Q2

REPORT INFORMATION
  Report Type: Spontaneous
  Country: JP (occurrence: JP)
  Receive Date: 20250624
  Receipt Date: 20250624
  Transmission Date: 20250716
  Serious: Yes (Other)
  Sender: GE HEALTHCARE
  Company Number: JP-GEHPL-2025JSU008013AA

PATIENT
  Age: 60 Year
  Sex: Female
  Weight: 41 kg

DRUGS (1)
  1. OMNIPAQUE [Suspect]
     Active Substance: IOHEXOL
     Indication: Computerised tomogram
     Route: 042
     Dates: start: 20250612, end: 20250612

REACTIONS (5)
  - Cough [Recovered/Resolved]
  - Urticaria [Recovered/Resolved]
  - Sneezing [Recovering/Resolving]
  - Urethral pain [Recovering/Resolving]
  - Oropharyngeal discomfort [Recovered/Resolved]

NARRATIVE: CASE EVENT DATE: 20250612
